FAERS Safety Report 9522771 (Version 1)
Quarter: 2013Q1

REPORT INFORMATION
  Report Type: Spontaneous
  Country: US (occurrence: None)
  Receive Date: 20130305
  Receipt Date: 20130305
  Transmission Date: 20140127
  Serious: Yes (Hospitalization, Other)
  Sender: FDA-Public Use
  Company Number: 163-21880-12080410

PATIENT
  Age: 64 Year
  Sex: Female
  Weight: 94.8 kg

DRUGS (15)
  1. REVLIMID [Suspect]
     Indication: PLASMA CELL MYELOMA
     Dosage: 14 IN 28 D
     Route: 048
     Dates: start: 20120126
  2. PROTONIX (PANTOPRAZOLE) [Concomitant]
  3. AMBIEN (ZOLPIDEM TARTRATE) [Concomitant]
  4. COUMADIN (WARFARIN SODIUM) [Concomitant]
  5. FUROSEMIDE (FUROSEMIDE) [Concomitant]
  6. KLOR-CON (POTASSIUM CHLORIDE) [Concomitant]
  7. LEXAPRO (ESCITALOPRAM OXALATE) [Concomitant]
  8. LORTAB (VICODIN) [Concomitant]
  9. NITRO-DUR (GLYCERYL TRINITRATE) [Concomitant]
  10. NITROSTAT (GLYCERYL TRINITRATE) [Concomitant]
  11. PREDNISONE (PREDNISONE) [Concomitant]
  12. TEMAZEPAM (TEMAZEPAM) [Concomitant]
  13. VITAMIN C [Concomitant]
  14. DEXAMETHASONE (DEXAMETHASONE) [Concomitant]
  15. ZOMETA (ZOLEDRONIC ACID) [Concomitant]

REACTIONS (2)
  - Deep vein thrombosis [None]
  - Lymph gland infection [None]
